FAERS Safety Report 7264802-9 (Version None)
Quarter: 2011Q1

REPORT INFORMATION
  Report Type: 
  Country: None (occurrence: None)
  Receive Date: 20110131
  Receipt Date: 20110126
  Transmission Date: 20110831
  Serious: Yes (Other)
  Sender: FDA-Public Use
  Company Number: CA-US-EMD SERONO, INC.-7037468

PATIENT
  Sex: Male

DRUGS (14)
  1. ELTROXIN [Concomitant]
  2. NEXIUM [Concomitant]
  3. MYLAN-PIOGLITAZONE [Concomitant]
  4. TEVA-AMLODIPINE [Concomitant]
  5. REBIF [Suspect]
     Indication: MULTIPLE SCLEROSIS
     Dates: start: 20101223
  6. VALPROATE SODIUM [Concomitant]
  7. ANTIDEPRESSANT [Concomitant]
  8. CORTISONE [Concomitant]
  9. CIPRALEX [Concomitant]
  10. FLOVEN [Concomitant]
  11. METFORMIN [Concomitant]
  12. RATIO-ATORVASTATIN [Concomitant]
  13. GEN-GLYBE [Concomitant]
  14. GLYBURIDE [Concomitant]

REACTIONS (6)
  - PYREXIA [None]
  - RECTAL HAEMORRHAGE [None]
  - CHILLS [None]
  - HEADACHE [None]
  - CHEST PAIN [None]
  - VOMITING [None]
